FAERS Safety Report 16339812 (Version 1)
Quarter: 2019Q2

REPORT INFORMATION
  Report Type: Spontaneous
  Country: US (occurrence: US)
  Receive Date: 20190521
  Receipt Date: 20190521
  Transmission Date: 20190711
  Serious: No
  Sender: FDA-Public Use
  Company Number: US-TEVA-2019-US-1049628

PATIENT
  Age: 57 Year
  Sex: Male

DRUGS (3)
  1. TADALAFIL. [Suspect]
     Active Substance: TADALAFIL
     Indication: POSTOPERATIVE CARE
     Route: 065
  2. TADALAFIL. [Suspect]
     Active Substance: TADALAFIL
     Route: 065
  3. SILDENAFIL. [Suspect]
     Active Substance: SILDENAFIL
     Indication: AUTONOMIC NERVOUS SYSTEM IMBALANCE
     Dosage: 100 MILLIGRAM DAILY;
     Route: 065

REACTIONS (1)
  - Colour blindness [Recovered/Resolved]
